FAERS Safety Report 7632684-9 (Version None)
Quarter: 2011Q3

REPORT INFORMATION
  Report Type: 
  Country: None (occurrence: None)
  Receive Date: 20110725
  Receipt Date: 20101130
  Transmission Date: 20111222
  Serious: No
  Sender: FDA-Public Use
  Company Number: US-BRISTOL-MYERS SQUIBB COMPANY-15412760

PATIENT
  Age: 82 Year
  Sex: Male

DRUGS (3)
  1. WATER [Concomitant]
     Dosage: WATER PILL
  2. COUMADIN [Suspect]
     Dosage: ONE WEEK AGO
     Dates: start: 20101101
  3. ASPIRIN [Concomitant]

REACTIONS (1)
  - PRURITUS [None]
